FAERS Safety Report 25085716 (Version 1)
Quarter: 2025Q1

REPORT INFORMATION
  Report Type: Other
  Country: GB (occurrence: GB)
  Receive Date: 20250317
  Receipt Date: 20250317
  Transmission Date: 20250408
  Serious: Yes (Other)
  Sender: GLENMARK
  Company Number: None

PATIENT
  Age: 74 Year
  Sex: Male
  Weight: 77 kg

DRUGS (2)
  1. ROPINIROLE HYDROCHLORIDE [Suspect]
     Active Substance: ROPINIROLE HYDROCHLORIDE
     Indication: Restless legs syndrome
     Route: 065
     Dates: start: 2023
  2. PANTOPRAZOLE [Concomitant]
     Active Substance: PANTOPRAZOLE
     Indication: Gastrooesophageal reflux disease
     Route: 065
     Dates: start: 2021

REACTIONS (6)
  - Rebound effect [Not Recovered/Not Resolved]
  - Medication error [Unknown]
  - Circumstance or information capable of leading to medication error [Unknown]
  - Restless legs syndrome [Unknown]
  - Gambling [Unknown]
  - Ill-defined disorder [Unknown]
